FAERS Safety Report 9510722 (Version 1)
Quarter: 2013Q3

REPORT INFORMATION
  Report Type: Spontaneous
  Country: US (occurrence: US)
  Receive Date: 20130909
  Receipt Date: 20130909
  Transmission Date: 20140515
  Serious: Yes (Death)
  Sender: FDA-Public Use
  Company Number: US-ROCHE-1272267

PATIENT
  Age: 46 Year
  Sex: Male

DRUGS (1)
  1. XELODA [Suspect]
     Indication: TONGUE NEOPLASM MALIGNANT STAGE UNSPECIFIED
     Route: 048
     Dates: start: 20130904, end: 20130906

REACTIONS (1)
  - Death [Fatal]
